FAERS Safety Report 7543751-2 (Version None)
Quarter: 2011Q2

REPORT INFORMATION
  Report Type: 
  Country: None (occurrence: None)
  Receive Date: 20110613
  Receipt Date: 20040717
  Transmission Date: 20111010
  Serious: Yes (Other)
  Sender: FDA-Public Use
  Company Number: PHFR2001GB02620

PATIENT
  Sex: Male

DRUGS (5)
  1. CLOZARIL [Suspect]
     Indication: SCHIZOPHRENIA
     Dosage: 600 MG
     Route: 048
     Dates: start: 19981001, end: 20010919
  2. PROCYCLIDINE HYDROCHLORIDE 2MG TAB [Concomitant]
     Route: 065
  3. CLOZARIL [Suspect]
     Dates: start: 20020425
  4. CITALOPRAM HYDROBROMIDE [Concomitant]
     Route: 065
  5. RISPERIDONE [Concomitant]
     Route: 065

REACTIONS (4)
  - HEPATITIS [None]
  - JAUNDICE [None]
  - HEPATITIS A [None]
  - LIVER FUNCTION TEST ABNORMAL [None]
